FAERS Safety Report 13259612 (Version 5)
Quarter: 2017Q3

REPORT INFORMATION
  Report Type: Other
  Country: US (occurrence: US)
  Receive Date: 20170222
  Receipt Date: 20170907
  Transmission Date: 20171127
  Serious: Yes (Hospitalization, Other)
  Sender: FDA-Public Use
  Company Number: US-ACORDA-ACO_134055_2017

PATIENT
  Age: 58 Year
  Sex: Male
  Weight: 72.56 kg

DRUGS (6)
  1. TECFIDERA [Suspect]
     Active Substance: DIMETHYL FUMARATE
     Dosage: 240 MG, BID
     Route: 048
     Dates: start: 20141002
  2. AMPYRA [Suspect]
     Active Substance: DALFAMPRIDINE
     Indication: MULTIPLE SCLEROSIS
     Dosage: 10 MG, BID
     Route: 048
     Dates: start: 20150716
  3. AMPYRA [Suspect]
     Active Substance: DALFAMPRIDINE
     Dosage: UNK
  4. TECFIDERA [Suspect]
     Active Substance: DIMETHYL FUMARATE
     Dosage: 240 UNK, UNK
     Route: 048
     Dates: start: 20140924
  5. LISINOPRIL AND HYDROCHLOROTHIAZIDE [Concomitant]
     Active Substance: HYDROCHLOROTHIAZIDE\LISINOPRIL
     Indication: PRODUCT USED FOR UNKNOWN INDICATION
     Dosage: 20/12.5 UNK, UNK
     Route: 065
  6. TECFIDERA [Suspect]
     Active Substance: DIMETHYL FUMARATE
     Indication: MULTIPLE SCLEROSIS
     Dosage: 120 MG, BID
     Route: 048
     Dates: start: 20140915, end: 20141001

REACTIONS (9)
  - Subarachnoid haemorrhage [Unknown]
  - Nausea [Recovered/Resolved]
  - Ischaemic stroke [Recovered/Resolved with Sequelae]
  - Syncope [Unknown]
  - Skull fracture [Recovered/Resolved]
  - Craniocerebral injury [Unknown]
  - Streptococcal sepsis [Recovered/Resolved]
  - Fall [Recovered/Resolved]
  - Ataxia [Recovering/Resolving]

NARRATIVE: CASE EVENT DATE: 201604
